FAERS Safety Report 10443388 (Version 6)
Quarter: 2015Q1

REPORT INFORMATION
  Report Type: Spontaneous
  Country: US (occurrence: US)
  Receive Date: 20140910
  Receipt Date: 20150105
  Transmission Date: 20150720
  Serious: Yes (Hospitalization)
  Sender: FDA-Public Use
  Company Number: US-UNITED THERAPEUTICS-UNT-2014-006943

PATIENT
  Age: 44 Year
  Sex: Female
  Weight: 116.5 kg

DRUGS (5)
  1. REMODULIN [Suspect]
     Active Substance: TREPROSTINIL
     Indication: PULMONARY HYPERTENSION
     Dosage: 0.0405 ?G/KG, CONTINUING
     Route: 058
     Dates: start: 20140527
  2. REVATIO [Concomitant]
     Active Substance: SILDENAFIL CITRATE
     Indication: PRODUCT USED FOR UNKNOWN INDICATION
     Dosage: UNK
  3. REMODULIN [Suspect]
     Active Substance: TREPROSTINIL
     Indication: COR PULMONALE CHRONIC
     Dosage: 0.029 ?G/KG, CONTINUING
     Route: 058
     Dates: start: 20140527
  4. WARFARIN [Concomitant]
     Active Substance: WARFARIN
     Indication: PRODUCT USED FOR UNKNOWN INDICATION
  5. REMODULIN [Suspect]
     Active Substance: TREPROSTINIL
     Indication: PULMONARY ARTERIAL HYPERTENSION
     Dosage: 0.1 ?G/KG CONTINUING
     Route: 058
     Dates: start: 20140527

REACTIONS (11)
  - Infusion site oedema [Unknown]
  - Infusion site induration [Unknown]
  - Haemoptysis [Recovering/Resolving]
  - Infusion site infection [Unknown]
  - Infusion site erythema [Unknown]
  - Seasonal allergy [Unknown]
  - Nasopharyngitis [Unknown]
  - Anaemia [Recovering/Resolving]
  - Diabetes mellitus [Unknown]
  - Pneumonia [Recovering/Resolving]
  - Infusion site pain [Unknown]

NARRATIVE: CASE EVENT DATE: 2014
